FAERS Safety Report 9804669 (Version 1)
Quarter: 2014Q1

REPORT INFORMATION
  Report Type: Spontaneous
  Country: US (occurrence: US)
  Receive Date: 20140108
  Receipt Date: 20140108
  Transmission Date: 20141002
  Serious: Yes (Hospitalization)
  Sender: FDA-Public Use
  Company Number: PHHY2014US001206

PATIENT
  Age: 69 Year
  Sex: Male

DRUGS (5)
  1. ACETYLSALICYLIC ACID [Suspect]
     Indication: IMMUNE TOLERANCE INDUCTION
     Dosage: 20 MG, UNK
  2. ACETYLSALICYLIC ACID [Suspect]
     Dosage: 40 MG, UNK
  3. ACETYLSALICYLIC ACID [Suspect]
     Dosage: 40 MG, UNK
  4. ACETYLSALICYLIC ACID [Suspect]
     Dosage: 81 MG, UNK
  5. EPINEPHRINE [Suspect]
     Dosage: 0.3 MG (1:1000)
     Route: 030

REACTIONS (21)
  - Kounis syndrome [Unknown]
  - Acute myocardial infarction [Unknown]
  - Wheezing [Unknown]
  - Nasal congestion [Unknown]
  - Lacrimation increased [Unknown]
  - Local swelling [Unknown]
  - Rash maculo-papular [Unknown]
  - Swollen tongue [Unknown]
  - Lip swelling [Unknown]
  - Pharyngeal oedema [Recovering/Resolving]
  - Dyspnoea [Unknown]
  - Palpitations [Unknown]
  - Respiratory distress [Unknown]
  - Stridor [Unknown]
  - Urticaria [Unknown]
  - Sinus tachycardia [Unknown]
  - Chest pain [Unknown]
  - Troponin increased [Unknown]
  - Vascular graft thrombosis [Unknown]
  - Myocardial ischaemia [Unknown]
  - Anaphylactic reaction [Unknown]
